FAERS Safety Report 7548458-3 (Version None)
Quarter: 2011Q2

REPORT INFORMATION
  Report Type: 
  Country: None (occurrence: None)
  Receive Date: 20110615
  Receipt Date: 20110606
  Transmission Date: 20111010
  Serious: Yes (Other)
  Sender: FDA-Public Use
  Company Number: JP-CTI_01364_2011

PATIENT
  Age: 12 Month
  Sex: Female

DRUGS (4)
  1. L-CARBOCISTEINE [Concomitant]
     Dosage: DF
     Route: 048
     Dates: start: 20110523
  2. MEIACT MS (CEFDITOREN PIVOXIL) [Suspect]
     Indication: INFECTION
     Dosage: DF
     Route: 048
     Dates: start: 20110523, end: 20110524
  3. TIPEPIDINE HIBENZATE [Concomitant]
     Dosage: DF
     Route: 048
     Dates: start: 20110523
  4. CYPROHEPTADINE HYDROCHLORIDE HYDRATE [Concomitant]
     Dosage: DF
     Route: 048
     Dates: start: 20110523

REACTIONS (2)
  - OTITIS MEDIA [None]
  - EYELID PTOSIS [None]
